FAERS Safety Report 8564775-2 (Version None)
Quarter: 2012Q3

REPORT INFORMATION
  Report Type: 
  Country: None (occurrence: None)
  Receive Date: 20120803
  Receipt Date: 20120726
  Transmission Date: 20120928
  Serious: Yes (Death, Life-Threatening, Hospitalization)
  Sender: FDA-Public Use
  Company Number: GB-CELGENEUS-167-21880-11122237

PATIENT
  Age: 49 Year
  Sex: Female

DRUGS (7)
  1. CYCLOPHOSPHAMIDE [Suspect]
     Route: 048
     Dates: start: 20111130, end: 20111211
  2. REVLIMID [Suspect]
     Route: 048
     Dates: start: 20111208, end: 20111209
  3. DEXAMETHASONE [Suspect]
     Route: 048
     Dates: start: 20111207, end: 20111211
  4. DEXAMETHASONE [Suspect]
     Route: 048
     Dates: start: 20111123, end: 20111207
  5. PAMIDRONATE DISODIUM [Concomitant]
     Route: 041
  6. REVLIMID [Suspect]
     Route: 048
     Dates: start: 20111123, end: 20111208
  7. CYCLOPHOSPHAMIDE [Suspect]
     Route: 048
     Dates: start: 20111123, end: 20111130

REACTIONS (1)
  - HEPATITIS B [None]
